FAERS Safety Report 18327641 (Version 3)
Quarter: 2022Q1

REPORT INFORMATION
  Report Type: Spontaneous
  Country: US (occurrence: US)
  Receive Date: 20200930
  Receipt Date: 20220209
  Transmission Date: 20220424
  Serious: Yes (Hospitalization, Other)
  Sender: FDA-Public Use
  Company Number: US-SAARTEMIS-SAC202009290033

PATIENT
  Age: 70 Year
  Sex: Male

DRUGS (1)
  1. ZANTAC [Suspect]
     Active Substance: RANITIDINE HYDROCHLORIDE
     Dosage: UNK
     Dates: start: 198101, end: 200001

REACTIONS (2)
  - Neoplasm malignant [Unknown]
  - Prostatic disorder [Unknown]

NARRATIVE: CASE EVENT DATE: 19980101
